FAERS Safety Report 6678874-3 (Version None)
Quarter: 2010Q2

REPORT INFORMATION
  Report Type: 
  Country: None (occurrence: None)
  Receive Date: 20100413
  Receipt Date: 20100402
  Transmission Date: 20101027
  Serious: Yes (Other)
  Sender: FDA-Public Use
  Company Number: GB-PFIZER INC-2010038017

PATIENT
  Age: 41 Year
  Sex: Male
  Weight: 130 kg

DRUGS (3)
  1. LINEZOLID [Suspect]
     Indication: OSTEOMYELITIS
     Dosage: 600 MG, 2X/DAY
     Route: 048
     Dates: start: 20100118, end: 20100125
  2. LANTUS [Concomitant]
  3. NOVORAPID [Concomitant]

REACTIONS (3)
  - DEAFNESS [None]
  - LOCAL SWELLING [None]
  - RASH GENERALISED [None]
